FAERS Safety Report 8907921 (Version 1)
Quarter: 2012Q4

REPORT INFORMATION
  Report Type: Report from Study
  Country: US (occurrence: US)
  Receive Date: 20121114
  Receipt Date: 20121114
  Transmission Date: 20130627
  Serious: Yes (Life-Threatening, Hospitalization, Other)
  Sender: FDA-Public Use
  Company Number: US-BRISTOL-MYERS SQUIBB COMPANY-16054884

PATIENT
  Age: 70 Year
  Sex: Male
  Weight: 61 kg

DRUGS (9)
  1. PACLITAXEL [Suspect]
     Indication: NON-SMALL CELL LUNG CANCER
     Dosage: Last dose on 28Jan11
     Route: 042
     Dates: start: 20101122
  2. CARBOPLATIN [Suspect]
     Indication: NON-SMALL CELL LUNG CANCER
     Dosage: 1 Df : 6 AUC,Last dose on 27Jan11
     Route: 042
     Dates: start: 20101122
  3. BEVACIZUMAB [Suspect]
     Indication: NON-SMALL CELL LUNG CANCER
     Dosage: Last dose on 24Jan11
     Route: 042
     Dates: start: 20101122
  4. FOLIC ACID [Concomitant]
     Dates: start: 20101111, end: 20110317
  5. PROMETHAZINE [Concomitant]
     Dates: start: 20110124
  6. BENAZEPRIL HCL + HCTZ [Concomitant]
     Dates: start: 20101213
  7. DEXAMETHASONE [Concomitant]
     Dates: start: 20061117, end: 20110224
  8. PERCOCET [Concomitant]
  9. SUCRALFATE [Concomitant]
     Dates: end: 20110414

REACTIONS (3)
  - Pulmonary embolism [Recovering/Resolving]
  - Deep vein thrombosis [Recovering/Resolving]
  - Lacunar infarction [Unknown]
